FAERS Safety Report 20993765 (Version 1)
Quarter: 2022Q2

REPORT INFORMATION
  Report Type: Spontaneous
  Country: US (occurrence: US)
  Receive Date: 20220622
  Receipt Date: 20220622
  Transmission Date: 20220721
  Serious: No
  Sender: FDA-Public Use
  Company Number: US-CTI BIOPHARMA-2022US02783

PATIENT
  Age: 72 Year
  Sex: Male
  Weight: 79.365 kg

DRUGS (1)
  1. VONJO [Suspect]
     Active Substance: PACRITINIB
     Indication: Myelofibrosis
     Dosage: 200 UNK, BID
     Route: 048

REACTIONS (1)
  - Urinary tract infection [Unknown]
